FAERS Safety Report 13460645 (Version 1)
Quarter: 2017Q2

REPORT INFORMATION
  Report Type: Spontaneous
  Country: US (occurrence: US)
  Receive Date: 20170419
  Receipt Date: 20170419
  Transmission Date: 20170830
  Serious: No
  Sender: FDA-Public Use
  Company Number: None

PATIENT
  Age: 69 Year
  Sex: Female
  Weight: 58.97 kg

DRUGS (6)
  1. LUCENTIS [Suspect]
     Active Substance: RANIBIZUMAB
  2. ATENOLOL. [Concomitant]
     Active Substance: ATENOLOL
  3. FAMOTIDINE. [Concomitant]
     Active Substance: FAMOTIDINE
  4. ENALAPRIL [Concomitant]
     Active Substance: ENALAPRIL
  5. PROBIOTICS [Concomitant]
     Active Substance: PROBIOTICS NOS
  6. FLOVENT [Concomitant]
     Active Substance: FLUTICASONE PROPIONATE

REACTIONS (4)
  - Dizziness [None]
  - Anxiety [None]
  - Blood pressure increased [None]
  - Headache [None]

NARRATIVE: CASE EVENT DATE: 20170406
